FAERS Safety Report 5577917-8 (Version None)
Quarter: 2007Q4

REPORT INFORMATION
  Report Type: 
  Country: None (occurrence: None)
  Receive Date: 20071231
  Receipt Date: 20071219
  Transmission Date: 20080405
  Serious: Yes (Other)
  Sender: FDA-Public Use
  Company Number: US-TYCO HEALTHCARE/MALLINCKRODT-T200701589

PATIENT

DRUGS (4)
  1. OPTIMARK [Suspect]
     Indication: NUCLEAR MAGNETIC RESONANCE IMAGING
     Dosage: UNK, SINGLE
     Dates: start: 20041022, end: 20071022
  2. OPTIMARK [Suspect]
     Dosage: UNK, SINGLE
     Dates: start: 20041028, end: 20041028
  3. OPTIMARK [Suspect]
     Dosage: UNK, SINGLE
     Dates: start: 20041031, end: 20041031
  4. OPTIMARK [Suspect]
     Dosage: UNK, SINGLE
     Dates: start: 20041229, end: 20041229

REACTIONS (1)
  - NEPHROGENIC SYSTEMIC FIBROSIS [None]
